FAERS Safety Report 5808328-5 (Version None)
Quarter: 2008Q3

REPORT INFORMATION
  Report Type: 
  Country: None (occurrence: None)
  Receive Date: 20080709
  Receipt Date: 20080625
  Transmission Date: 20090109
  Serious: Yes (Other)
  Sender: FDA-Public Use
  Company Number: B0527753A

PATIENT
  Age: 50 Year
  Sex: Male

DRUGS (6)
  1. ALKERAN [Suspect]
     Indication: MULTIPLE MYELOMA
  2. VINCRISTINE [Suspect]
     Indication: MULTIPLE MYELOMA
  3. PREDNISOLONE [Suspect]
     Indication: MULTIPLE MYELOMA
  4. METHYLPREDNISOLONE [Suspect]
     Indication: MULTIPLE MYELOMA
  5. STIMULANT (FORMULATION UNKNOWN) (STIMULANT) [Suspect]
     Indication: MULTIPLE MYELOMA
  6. CYCLOPHOSPHAMIDE [Suspect]
     Indication: MULTIPLE MYELOMA

REACTIONS (7)
  - BONE MARROW FAILURE [None]
  - MUCOSAL HAEMORRHAGE [None]
  - MYELODYSPLASTIC SYNDROME [None]
  - PANCYTOPENIA [None]
  - PAROXYSMAL NOCTURNAL HAEMOGLOBINURIA [None]
  - RENAL IMPAIRMENT [None]
  - SKIN HAEMORRHAGE [None]
